FAERS Safety Report 7656374-1 (Version None)
Quarter: 2011Q3

REPORT INFORMATION
  Report Type: 
  Country: None (occurrence: None)
  Receive Date: 20110804
  Receipt Date: 20110617
  Transmission Date: 20111222
  Serious: Yes (Death, Other)
  Sender: FDA-Public Use
  Company Number: US-GLAXOSMITHKLINE-A0932244A

PATIENT
  Age: 88 Year
  Sex: Male

DRUGS (8)
  1. PREDNISONE [Concomitant]
  2. DIOVAN [Concomitant]
  3. TOPROL-XL [Concomitant]
  4. VALIUM [Concomitant]
  5. UNKNOWN [Concomitant]
  6. PROMACTA [Suspect]
     Indication: IDIOPATHIC THROMBOCYTOPENIC PURPURA
     Dosage: 50MG PER DAY
     Route: 048
     Dates: start: 20110208, end: 20110201
  7. CORTICOSTEROIDS [Concomitant]
     Indication: IDIOPATHIC THROMBOCYTOPENIC PURPURA
     Dates: start: 20100730
  8. TYLENOL W/ CODEINE [Concomitant]

REACTIONS (2)
  - DEEP VEIN THROMBOSIS [None]
  - DEATH [None]
